FAERS Safety Report 8561557-2 (Version None)
Quarter: 2012Q3

REPORT INFORMATION
  Report Type: 
  Country: None (occurrence: None)
  Receive Date: 20120802
  Receipt Date: 20120731
  Transmission Date: 20120928
  Serious: Yes (Hospitalization)
  Sender: FDA-Public Use
  Company Number: PHHY2012GB065985

PATIENT
  Age: 83 Year
  Sex: Male

DRUGS (6)
  1. PRAVASTATIN [Concomitant]
     Dosage: 20 MG, UNK
  2. QUININE SULFATE [Concomitant]
     Dosage: 300 MG, UNK
  3. DONEPEZIL HCL [Suspect]
     Indication: DEMENTIA ALZHEIMER'S TYPE
     Dosage: 10 MG, UNK
     Route: 048
     Dates: end: 20120713
  4. AMLODIPINE [Concomitant]
     Dosage: 5 MG, UNK
  5. ASPIRIN [Concomitant]
     Dosage: 75 MG, UNK
  6. CANDESARTAN [Concomitant]
     Dosage: 2 MG, UNK

REACTIONS (4)
  - SYNCOPE [None]
  - FALL [None]
  - BRADYCARDIA [None]
  - DIARRHOEA [None]
